FAERS Safety Report 15025269 (Version 6)
Quarter: 2020Q1

REPORT INFORMATION
  Report Type: Report from Study
  Country: US (occurrence: US)
  Receive Date: 20180618
  Receipt Date: 20200316
  Transmission Date: 20200409
  Serious: Yes (Hospitalization, Other)
  Sender: FDA-Public Use
  Company Number: US-ACTELION-A-NJ2018-171587

PATIENT
  Age: 72 Year
  Sex: Female
  Weight: 61.68 kg

DRUGS (4)
  1. OPSUMIT [Suspect]
     Active Substance: MACITENTAN
     Indication: PULMONARY ARTERIAL HYPERTENSION
     Dosage: 10 MG, BID
     Route: 048
     Dates: start: 20180211
  2. XARELTO [Concomitant]
     Active Substance: RIVAROXABAN
  3. DILTIAZEM. [Concomitant]
     Active Substance: DILTIAZEM
  4. SILDENAFIL. [Concomitant]
     Active Substance: SILDENAFIL

REACTIONS (12)
  - Neck pain [Unknown]
  - Vision blurred [Unknown]
  - Thrombosis [Recovered/Resolved]
  - Ocular hyperaemia [Unknown]
  - Urinary tract infection [Recovering/Resolving]
  - Nasal congestion [Unknown]
  - Periorbital swelling [Unknown]
  - Hypotension [Not Recovered/Not Resolved]
  - Fluid retention [Unknown]
  - Pulmonary embolism [Recovered/Resolved]
  - Pneumonia [Unknown]
  - Headache [Unknown]

NARRATIVE: CASE EVENT DATE: 20180225
